FAERS Safety Report 7802756-4 (Version None)
Quarter: 2011Q4

REPORT INFORMATION
  Report Type: 
  Country: None (occurrence: None)
  Receive Date: 20111007
  Receipt Date: 20110929
  Transmission Date: 20120403
  Serious: Yes (Other)
  Sender: FDA-Public Use
  Company Number: PHHY2011US87493

PATIENT
  Age: 29 Year
  Sex: Female

DRUGS (2)
  1. PREDNISOLONE [Suspect]
     Indication: GLOMERULONEPHRITIS
     Dosage: 60 MG, UNK
  2. MYCOPHENOLATE MOFETIL [Concomitant]
     Indication: GLOMERULONEPHRITIS
     Dosage: 1000 MG, BID

REACTIONS (5)
  - SCOTOMA [None]
  - RETINAL DETACHMENT [None]
  - CHORIORETINOPATHY [None]
  - METAMORPHOPSIA [None]
  - VISION BLURRED [None]
